FAERS Safety Report 15256564 (Version 2)
Quarter: 2018Q3

REPORT INFORMATION
  Report Type: Spontaneous
  Country: US (occurrence: US)
  Receive Date: 20180808
  Receipt Date: 20180810
  Transmission Date: 20181010
  Serious: Yes (Other)
  Sender: FDA-Public Use
  Company Number: US-PFIZER INC-2018317411

PATIENT
  Sex: Female

DRUGS (3)
  1. INSULIN [Concomitant]
     Active Substance: INSULIN NOS
     Dosage: UNK
  2. METHOTREXATE SODIUM. [Suspect]
     Active Substance: METHOTREXATE SODIUM
     Indication: RHEUMATOID ARTHRITIS
     Dosage: UNK
     Dates: start: 2007, end: 2017
  3. METHOTREXATE SODIUM. [Suspect]
     Active Substance: METHOTREXATE SODIUM
     Dosage: UNK UNK, AS NEEDED

REACTIONS (8)
  - Dysstasia [Unknown]
  - Drug ineffective [Unknown]
  - Sciatica [Unknown]
  - Drug intolerance [Unknown]
  - Decreased immune responsiveness [Unknown]
  - Product use issue [Unknown]
  - Skin hyperpigmentation [Unknown]
  - Chronic kidney disease [Unknown]
